FAERS Safety Report 8765905 (Version 1)
Quarter: 2012Q4

REPORT INFORMATION
  Report Type: 
  Country: GB (occurrence: GB)
  Receive Date: 20120904
  Receipt Date: 20120904
  Transmission Date: 20130627
  Serious: Yes (Disabling)
  Sender: FDA-Public Use
  Company Number: PHHY2012GB074539

PATIENT
  Age: 64 Year
  Sex: Female

DRUGS (1)
  1. METFORMIN [Suspect]

REACTIONS (1)
  - Pruritus generalised [Unknown]
